FAERS Safety Report 7656658-7 (Version None)
Quarter: 2011Q3

REPORT INFORMATION
  Report Type: 
  Country: None (occurrence: None)
  Receive Date: 20110729
  Receipt Date: 20110621
  Transmission Date: 20111222
  Serious: Yes (Hospitalization)
  Sender: FDA-Public Use
  Company Number: JPI-P-015926

PATIENT
  Age: 60 Year
  Sex: Female
  Weight: 67.586 kg

DRUGS (8)
  1. PAROXETINE HCL [Concomitant]
  2. ESTRADIOL [Concomitant]
  3. XYREM [Suspect]
     Indication: SOMNOLENCE
     Dosage: ORAL ; 9 GM (4.5 GM,2 IN 1 D), ORAL
     Route: 048
     Dates: start: 20051013
  4. XYREM [Suspect]
     Indication: NARCOLEPSY
     Dosage: ORAL ; 9 GM (4.5 GM,2 IN 1 D), ORAL
     Route: 048
     Dates: start: 20051013
  5. XYREM [Suspect]
     Indication: FIBROMYALGIA
     Dosage: ORAL ; 9 GM (4.5 GM,2 IN 1 D), ORAL
     Route: 048
     Dates: start: 20051013
  6. LORAZEPAM [Suspect]
     Indication: ANXIETY
     Dosage: 2 MG (1 MG,2 IN 1 D),ORAL ; (MG,TAPERING DOSE DOWN 1/4 TABLET/2 DAYS) ; 1 MG (1 MG,1 IN 1 D)
     Route: 048
     Dates: start: 20110704, end: 20110714
  7. LORAZEPAM [Suspect]
     Indication: ANXIETY
     Dosage: 2 MG (1 MG,2 IN 1 D),ORAL ; (MG,TAPERING DOSE DOWN 1/4 TABLET/2 DAYS) ; 1 MG (1 MG,1 IN 1 D)
     Route: 048
     Dates: start: 20100701, end: 20110703
  8. LORAZEPAM [Suspect]
     Indication: ANXIETY
     Dosage: 2 MG (1 MG,2 IN 1 D),ORAL ; (MG,TAPERING DOSE DOWN 1/4 TABLET/2 DAYS) ; 1 MG (1 MG,1 IN 1 D)
     Route: 048
     Dates: start: 20110717

REACTIONS (4)
  - HEADACHE [None]
  - HYPERTENSION [None]
  - ANXIETY [None]
  - NASOPHARYNGITIS [None]
